FAERS Safety Report 9989208 (Version 1)
Quarter: 2013Q4

REPORT INFORMATION
  Report Type: Spontaneous
  Country: JP (occurrence: None)
  Receive Date: 20131023
  Receipt Date: 20131023
  Transmission Date: 20140711
  Serious: Yes (Hospitalization)
  Sender: FDA-Public Use
  Company Number: JP-20130064

PATIENT
  Age: 41 Year
  Sex: Male

DRUGS (6)
  1. LIPIODOL ULTRA FLUIDE (ETHIODIZED OIL), UNKNOWN [Suspect]
     Indication: THERAPEUTIC EMBOLISATION
     Dosage: 6 ML, 1 IN 1 D
     Route: 013
     Dates: start: 20110426, end: 20110426
  2. GELPART [Suspect]
     Indication: THERAPEUTIC EMBOLISATION
     Dates: start: 20110426, end: 20110426
  3. CISPLATIN [Concomitant]
  4. NEXAVAR [Concomitant]
  5. BARACLUDE [Concomitant]
  6. URSODEOXYCHOLIC ACID [Concomitant]

REACTIONS (6)
  - Biloma [None]
  - Hepatic cyst infection [None]
  - Off label use [None]
  - Metastases to lymph nodes [None]
  - Hepatectomy [None]
  - Hepatocellular carcinoma [None]
